FAERS Safety Report 5621105-3 (Version None)
Quarter: 2008Q1

REPORT INFORMATION
  Report Type: 
  Country: None (occurrence: None)
  Receive Date: 20080114
  Receipt Date: 20070117
  Transmission Date: 20080703
  Serious: Yes (Hospitalization)
  Sender: FDA-Public Use
  Company Number: A03200700538

PATIENT
  Age: 81 Year
  Sex: Male

DRUGS (5)
  1. PLAVIX [Suspect]
     Indication: PROPHYLAXIS
     Dosage: 75 MG QD - ORAL
     Route: 048
     Dates: start: 20060421, end: 20061113
  2. ASPIRIN [Suspect]
     Indication: PROPHYLAXIS
     Dosage: 81 MG QD - ORAL
     Route: 048
     Dates: start: 20051001
  3. CELEBREX [Suspect]
     Indication: ARTHRITIS
     Dosage: 200 MG QD - ORAL
     Route: 048
     Dates: start: 20000401, end: 20061113
  4. BIBR 1048 (DABIGATRAN ETEXILATE VS PLACEBO) [Suspect]
  5. LISINOPRIL [Concomitant]

REACTIONS (2)
  - GASTROINTESTINAL HAEMORRHAGE [None]
  - RECTAL HAEMORRHAGE [None]
